FAERS Safety Report 21194723 (Version 1)
Quarter: 2022Q3

REPORT INFORMATION
  Report Type: Spontaneous
  Country: JP (occurrence: JP)
  Receive Date: 20220810
  Receipt Date: 20220810
  Transmission Date: 20221026
  Serious: Yes (Other)
  Sender: FDA-Public Use
  Company Number: JP-GUERBET-JP-20220107

PATIENT
  Age: 60 Year
  Sex: Male

DRUGS (6)
  1. LIPIODOL [Suspect]
     Active Substance: ETHIODIZED OIL
     Indication: Therapeutic embolisation
     Route: 042
  2. ENBUCRILATE [Concomitant]
     Active Substance: ENBUCRILATE
     Indication: Therapeutic embolisation
     Route: 042
  3. ETHANOLAMINE OLEATE [Concomitant]
     Active Substance: ETHANOLAMINE OLEATE
     Indication: Therapeutic embolisation
     Dosage: 5% ETHANOLAMINE OLEATE-IOPAMIDOL (EOI) ADMINISTERED IN THE LEFT GASTRIC VEIN (4 ML OF 5% EOI)
     Route: 042
  4. ETHANOLAMINE OLEATE [Concomitant]
     Active Substance: ETHANOLAMINE OLEATE
     Dosage: 5% ETHANOLAMINE OLEATE-IOPAMIDOL (EOI) ADMINISTERED IN THE SHUNT INVOLVING THE PORTAL VEIN AND THE I
     Route: 042
  5. IOPAMIDOL [Concomitant]
     Active Substance: IOPAMIDOL
     Indication: Therapeutic embolisation
     Dosage: 5% ETHANOLAMINE OLEATE-IOPAMIDOL (EOI) ADMINISTERED IN THE LEFT GASTRIC VEIN (4 ML OF 5% EOI)
     Route: 042
  6. IOPAMIDOL [Concomitant]
     Active Substance: IOPAMIDOL
     Dosage: 5% ETHANOLAMINE OLEATE-IOPAMIDOL (EOI) ADMINISTERED IN THE SHUNT INVOLVING THE PORTAL VEIN AND THE I
     Route: 042

REACTIONS (2)
  - Portal vein thrombosis [Recovering/Resolving]
  - Product use in unapproved indication [Recovering/Resolving]
